FAERS Safety Report 13807968 (Version 1)
Quarter: 2017Q3

REPORT INFORMATION
  Report Type: Spontaneous
  Country: JP (occurrence: JP)
  Receive Date: 20170728
  Receipt Date: 20170728
  Transmission Date: 20171127
  Serious: Yes (Other)
  Sender: FDA-Public Use
  Company Number: JP-PFIZER INC-2017326867

PATIENT
  Sex: Female

DRUGS (1)
  1. SEIBULE [Suspect]
     Active Substance: MIGLITOL
     Dosage: UNK
     Route: 048
     Dates: start: 20170410, end: 20170626

REACTIONS (2)
  - Blood potassium decreased [Unknown]
  - Diarrhoea [Unknown]

NARRATIVE: CASE EVENT DATE: 2017
